FAERS Safety Report 13032892 (Version 1)
Quarter: 2016Q4

REPORT INFORMATION
  Report Type: Spontaneous
  Country: US (occurrence: US)
  Receive Date: 20161215
  Receipt Date: 20161215
  Transmission Date: 20170207
  Serious: Yes (Other)
  Sender: FDA-Public Use
  Company Number: US-BION-20160422

PATIENT
  Age: 33 Year
  Sex: Female

DRUGS (1)
  1. PROGESTERONE 200 MG CAPSULE [Suspect]
     Active Substance: PROGESTERONE
     Indication: PREGNANCY
     Route: 067
     Dates: start: 20160817

REACTIONS (4)
  - Vaginal discharge [Unknown]
  - Exposure during pregnancy [Unknown]
  - Drug prescribing error [Unknown]
  - Incorrect route of drug administration [Unknown]
